FAERS Safety Report 7441684-3 (Version None)
Quarter: 2011Q2

REPORT INFORMATION
  Report Type: 
  Country: None (occurrence: None)
  Receive Date: 20110428
  Receipt Date: 20100421
  Transmission Date: 20111010
  Serious: No
  Sender: FDA-Public Use
  Company Number: A0856104A

PATIENT
  Age: 60 Year
  Sex: Female

DRUGS (5)
  1. IMITREX [Suspect]
     Route: 065
  2. IMITREX [Suspect]
     Route: 048
  3. IMITREX [Suspect]
     Indication: MIGRAINE
     Route: 065
  4. AMERGE [Suspect]
     Indication: MIGRAINE
     Dosage: 2.5MG PER DAY
     Route: 048
  5. NO CONCURRENT MEDICATION [Concomitant]

REACTIONS (4)
  - DRUG INEFFECTIVE [None]
  - CHEST DISCOMFORT [None]
  - PRODUCT QUALITY ISSUE [None]
  - SWELLING FACE [None]
